FAERS Safety Report 4562469-1 (Version None)
Quarter: 2005Q1

REPORT INFORMATION
  Report Type: 
  Country: None (occurrence: None)
  Receive Date: 20050121
  Receipt Date: 20050104
  Transmission Date: 20050727
  Serious: Yes (Other)
  Sender: FDA-Public Use
  Company Number: USA050187435

PATIENT
  Sex: Female

DRUGS (2)
  1. CYMBALTA [Suspect]
  2. NEURONTIN (GABAPENTIN PFIZER) [Concomitant]

REACTIONS (1)
  - CONVULSION [None]
